FAERS Safety Report 8511511-1 (Version None)
Quarter: 2012Q3

REPORT INFORMATION
  Report Type: 
  Country: None (occurrence: None)
  Receive Date: 20120716
  Receipt Date: 20120707
  Transmission Date: 20120928
  Serious: Yes (Hospitalization)
  Sender: FDA-Public Use
  Company Number: JP-JNJFOC-20101004383

PATIENT
  Sex: Female
  Weight: 45 kg

DRUGS (10)
  1. PURSENNID [Concomitant]
     Route: 048
  2. FENTANYL-100 [Suspect]
     Indication: BACK PAIN
     Route: 062
     Dates: end: 20100616
  3. PSYCHOTROPICS NOS [Suspect]
     Indication: BIPOLAR DISORDER
     Route: 065
  4. DEPAKENE [Concomitant]
     Route: 048
  5. ROHYPNOL [Concomitant]
     Route: 048
  6. LODOPIN [Concomitant]
     Route: 048
  7. HYPNOTICS [Suspect]
     Indication: BIPOLAR DISORDER
     Route: 065
  8. CLONAZEPAM [Concomitant]
     Route: 048
  9. TEGRETOL [Concomitant]
     Route: 048
  10. HALCION [Concomitant]
     Route: 048

REACTIONS (9)
  - SOMNOLENCE [None]
  - PNEUMONIA ASPIRATION [None]
  - ALTERED STATE OF CONSCIOUSNESS [None]
  - DIABETES INSIPIDUS [None]
  - DRUG DIVERSION [None]
  - INTENTIONAL DRUG MISUSE [None]
  - HYPERNATRAEMIA [None]
  - FEELING ABNORMAL [None]
  - DEHYDRATION [None]
